FAERS Safety Report 25341438 (Version 1)
Quarter: 2025Q2

REPORT INFORMATION
  Report Type: Spontaneous
  Country: US (occurrence: None)
  Receive Date: 20250519
  Receipt Date: 20250519
  Transmission Date: 20250716
  Serious: Yes (Other)
  Sender: FDA-CTU
  Company Number: None

PATIENT
  Age: 73 Year
  Sex: Male
  Weight: 86 kg

DRUGS (7)
  1. RITUXIMAB [Suspect]
     Active Substance: RITUXIMAB
  2. CYCLOPHOSPHAMIDE [Suspect]
     Active Substance: CYCLOPHOSPHAMIDE
  3. DOXORUBICIN [Suspect]
     Active Substance: DOXORUBICIN
  4. VINCRISTINE [Suspect]
     Active Substance: VINCRISTINE
  5. PREDNISONE [Suspect]
     Active Substance: PREDNISONE
  6. FLUDARABINE [Suspect]
     Active Substance: FLUDARABINE PHOSPHATE
  7. AXICABTAGENE CILOLEUCEL [Suspect]
     Active Substance: AXICABTAGENE CILOLEUCEL

REACTIONS (10)
  - Cytokine release syndrome [None]
  - Hypoxia [None]
  - Neurotoxicity [None]
  - Tremor [None]
  - Atrial fibrillation [None]
  - Arthropathy [None]
  - Rash [None]
  - Herpes zoster [None]
  - Lymphadenopathy [None]
  - T-cell lymphoma [None]

NARRATIVE: CASE EVENT DATE: 20250507
